FAERS Safety Report 23640008 (Version 3)
Quarter: 2024Q2

REPORT INFORMATION
  Report Type: Spontaneous
  Country: US (occurrence: US)
  Receive Date: 20240317
  Receipt Date: 20240608
  Transmission Date: 20240716
  Serious: No
  Sender: FDA-Public Use
  Company Number: US-SA-SAC20240314000224

PATIENT
  Age: 46 Year
  Sex: Female

DRUGS (2)
  1. DUPIXENT [Suspect]
     Active Substance: DUPILUMAB
     Indication: Dermatitis atopic
     Dosage: 300 MG, QOW
     Route: 058
     Dates: start: 202305
  2. MIRENA [Concomitant]
     Active Substance: LEVONORGESTREL
     Dosage: UNK

REACTIONS (11)
  - Cough [Unknown]
  - Influenza [Unknown]
  - Nasal congestion [Unknown]
  - Ear congestion [Unknown]
  - Carpal tunnel syndrome [Unknown]
  - Condition aggravated [Unknown]
  - Paraesthesia [Unknown]
  - Muscle spasms [Unknown]
  - Pain [Unknown]
  - Musculoskeletal chest pain [Unknown]
  - Vision blurred [Recovered/Resolved]

NARRATIVE: CASE EVENT DATE: 20231201
